FAERS Safety Report 6919052-X (Version None)
Quarter: 2010Q3

REPORT INFORMATION
  Report Type: 
  Country: None (occurrence: None)
  Receive Date: 20100811
  Receipt Date: 20100728
  Transmission Date: 20110219
  Serious: Yes (Other)
  Sender: FDA-Public Use
  Company Number: PHHY2010BR49928

PATIENT
  Age: 30 Year
  Sex: Female

DRUGS (1)
  1. VOLTAREN [Suspect]
     Dosage: 75MG/3ML
     Route: 030

REACTIONS (7)
  - DEBRIDEMENT [None]
  - INJECTION SITE ERYTHEMA [None]
  - INJECTION SITE NECROSIS [None]
  - INJECTION SITE PAIN [None]
  - INJECTION SITE VESICLES [None]
  - PURULENT DISCHARGE [None]
  - PYREXIA [None]
